FAERS Safety Report 16533714 (Version 2)
Quarter: 2020Q4

REPORT INFORMATION
  Report Type: Other
  Country: CA (occurrence: CA)
  Receive Date: 20190704
  Receipt Date: 20201127
  Transmission Date: 20210113
  Serious: Yes (Hospitalization, Other)
  Sender: FDA-Public Use
  Company Number: CA-APOTEX-2019AP017407

PATIENT
  Age: 68 Year
  Sex: Female

DRUGS (26)
  1. FOLIC ACID. [Concomitant]
     Active Substance: FOLIC ACID
     Indication: PRODUCT USED FOR UNKNOWN INDICATION
     Dosage: UNK
     Route: 065
  2. LOPERAMIDE HYDROCHLORIDE. [Concomitant]
     Active Substance: LOPERAMIDE HYDROCHLORIDE
     Dosage: UNK
     Route: 065
  3. POTASSIUM [Concomitant]
     Active Substance: POTASSIUM
     Indication: BLOOD POTASSIUM DECREASED
  4. PREDNISONE. [Concomitant]
     Active Substance: PREDNISONE
     Indication: DIARRHOEA
     Dosage: UNK
     Route: 065
  5. ABRAXANE [Suspect]
     Active Substance: PACLITAXEL
     Dosage: 160 MILLIGRAM, CYCLICAL
     Route: 041
  6. LOPERAMIDE HYDROCHLORIDE. [Concomitant]
     Active Substance: LOPERAMIDE HYDROCHLORIDE
     Indication: DIARRHOEA
     Dosage: UNK
     Route: 065
  7. MAGNESIUM OXIDE. [Concomitant]
     Active Substance: MAGNESIUM OXIDE
     Indication: HYPOMAGNESAEMIA
     Dosage: UNK
     Route: 065
  8. FILGRASTIM [Concomitant]
     Active Substance: FILGRASTIM
     Indication: FEBRILE NEUTROPENIA
     Dosage: UNK
     Route: 065
  9. HYDROCORTISONE. [Concomitant]
     Active Substance: HYDROCORTISONE
     Indication: RASH
     Dosage: UNK
     Route: 065
  10. PANTOPRAZOLE [Concomitant]
     Active Substance: PANTOPRAZOLE
     Indication: GASTROOESOPHAGEAL REFLUX DISEASE
     Dosage: UNK
     Route: 065
  11. MEDI4736 [Suspect]
     Active Substance: DURVALUMAB
     Indication: PANCREATIC CARCINOMA METASTATIC
     Dosage: 1500 MG, Q.M.T.
     Route: 042
  12. PANTOPRAZOLE [Concomitant]
     Active Substance: PANTOPRAZOLE
     Indication: DYSPEPSIA
  13. POTASSIUM [Concomitant]
     Active Substance: POTASSIUM
     Indication: ORTHOSTATIC HYPOTENSION
     Dosage: UNK
     Route: 065
  14. PREDNISONE. [Concomitant]
     Active Substance: PREDNISONE
     Dosage: UNK
     Route: 065
  15. WHOLE BLOOD ACD [Concomitant]
     Dosage: UNK
     Route: 065
  16. TICILIMUMAB [Suspect]
     Active Substance: TREMELIMUMAB
     Indication: PANCREATIC CARCINOMA METASTATIC
     Dosage: 75 MG, ONE EVERY FOUR WEEK
     Route: 041
  17. WHOLE BLOOD ACD [Concomitant]
     Indication: ANAEMIA
     Dosage: UNK
     Route: 065
  18. GEMCITABINE. [Suspect]
     Active Substance: GEMCITABINE
     Indication: PANCREATIC CARCINOMA METASTATIC
     Dosage: 1292 MG, UNK (3 EVERY 28 DAYS)
     Route: 042
  19. GEMCITABINE. [Suspect]
     Active Substance: GEMCITABINE
     Dosage: 1292 MG, CYCLICAL
     Route: 041
  20. DILTIAZEM. [Concomitant]
     Active Substance: DILTIAZEM
     Indication: ARRHYTHMIA
     Dosage: UNK
     Route: 065
  21. METOCLOPRAMIDE. [Concomitant]
     Active Substance: METOCLOPRAMIDE
     Indication: NAUSEA
     Dosage: UNK
     Route: 065
  22. TICILIMUMAB [Suspect]
     Active Substance: TREMELIMUMAB
     Dosage: 75 MG, CYCLICAL
     Route: 041
  23. DURVALUMAB. [Suspect]
     Active Substance: DURVALUMAB
     Indication: PANCREATIC CARCINOMA METASTATIC
     Dosage: 1500 MG, Q.M.T.
     Route: 042
  24. OLMESARTAN [Concomitant]
     Active Substance: OLMESARTAN
     Indication: HYPERTENSION
     Dosage: UNK
     Route: 065
  25. ABRAXANE [Suspect]
     Active Substance: PACLITAXEL
     Indication: PANCREATIC CARCINOMA METASTATIC
     Dosage: 160 MG, UNK (3 EVERY 28 DAYS)
     Route: 041
  26. DURVALUMAB. [Suspect]
     Active Substance: DURVALUMAB
     Dosage: 1500 MILLIGRAM, CYCLICAL
     Route: 041

REACTIONS (5)
  - Skin ulcer [Not Recovered/Not Resolved]
  - Fatigue [Not Recovered/Not Resolved]
  - Presyncope [Not Recovered/Not Resolved]
  - Upper respiratory tract infection [Not Recovered/Not Resolved]
  - Diarrhoea [Not Recovered/Not Resolved]
